APPROVED DRUG PRODUCT: BICILLIN
Active Ingredient: PENICILLIN G BENZATHINE
Strength: 200,000 UNITS
Dosage Form/Route: TABLET;ORAL
Application: N050128 | Product #001
Applicant: WYETH AYERST LABORATORIES
Approved: Approved Prior to Jan 1, 1982 | RLD: No | RS: No | Type: DISCN